FAERS Safety Report 15479511 (Version 1)
Quarter: 2018Q4

REPORT INFORMATION
  Report Type: Report from Study
  Country: US (occurrence: US)
  Receive Date: 20181009
  Receipt Date: 20181009
  Transmission Date: 20190205
  Serious: Yes (Life-Threatening, Hospitalization, Other)
  Sender: FDA-Public Use
  Company Number: US-BRISTOL-MYERS SQUIBB COMPANY-BMS-2018-090503

PATIENT
  Age: 74 Year
  Sex: Male
  Weight: 108 kg

DRUGS (5)
  1. XTANDI [Suspect]
     Active Substance: ENZALUTAMIDE
     Indication: PROSTATE CANCER
     Dosage: 160 MG, QD
     Route: 048
     Dates: start: 20140114, end: 20180627
  2. WARFARIN SODIUM. [Suspect]
     Active Substance: WARFARIN SODIUM
     Indication: PRODUCT USED FOR UNKNOWN INDICATION
     Dosage: UNK
     Route: 065
  3. MIRABEGRON [Concomitant]
     Active Substance: MIRABEGRON
     Indication: PRODUCT USED FOR UNKNOWN INDICATION
     Dosage: 25 MG, UNK
     Route: 065
  4. LIPITOR [Concomitant]
     Active Substance: ATORVASTATIN CALCIUM
     Indication: PRODUCT USED FOR UNKNOWN INDICATION
     Dosage: UNK
     Route: 065
  5. TETRACYCLINE [Concomitant]
     Active Substance: TETRACYCLINE
     Indication: PRODUCT USED FOR UNKNOWN INDICATION
     Dosage: UNK
     Route: 065

REACTIONS (10)
  - Lung disorder [Not Recovered/Not Resolved]
  - Coronary artery disease [Unknown]
  - Atrial fibrillation [Not Recovered/Not Resolved]
  - Pneumoperitoneum [Unknown]
  - Acute kidney injury [Unknown]
  - Fatigue [Not Recovered/Not Resolved]
  - Melaena [Unknown]
  - Diaphragmatic disorder [Unknown]
  - Gastrointestinal haemorrhage [Recovered/Resolved]
  - Venous thrombosis [Unknown]

NARRATIVE: CASE EVENT DATE: 20170518
